FAERS Safety Report 23868489 (Version 1)
Quarter: 2024Q2

REPORT INFORMATION
  Report Type: Spontaneous
  Country: US (occurrence: US)
  Receive Date: 20240517
  Receipt Date: 20240517
  Transmission Date: 20240715
  Serious: Yes (Other)
  Sender: FDA-Public Use
  Company Number: US-PFIZER INC-PV202400063900

PATIENT
  Age: 6 Decade
  Sex: Female

DRUGS (2)
  1. FLUCONAZOLE [Suspect]
     Active Substance: FLUCONAZOLE
     Indication: Cerebral fungal infection
     Dosage: UNK, 1X/DAY
  2. CAPLYTA [Suspect]
     Active Substance: LUMATEPERONE
     Indication: Bipolar disorder
     Dosage: 42 MG
     Dates: start: 2024, end: 2024

REACTIONS (3)
  - Suicidal ideation [Unknown]
  - Depression [Unknown]
  - Crying [Unknown]
